FAERS Safety Report 5292296-1 (Version None)
Quarter: 2007Q2

REPORT INFORMATION
  Report Type: 
  Country: None (occurrence: None)
  Receive Date: 20070410
  Receipt Date: 20070410
  Transmission Date: 20071010
  Serious: Yes (Hospitalization)
  Sender: FDA-Public Use
  Company Number: AT-ROCHE-243231

PATIENT
  Age: 60 Year
  Sex: Male
  Weight: 102 kg

DRUGS (6)
  1. ISOTRETINOIN [Suspect]
     Indication: MALIGNANT MELANOMA
     Route: 048
     Dates: start: 20000413, end: 20000807
  2. INTERFERON ALFA [Suspect]
     Indication: MALIGNANT MELANOMA
     Route: 058
     Dates: start: 20000413
  3. SELOKEN RETARD [Concomitant]
     Route: 048
     Dates: start: 20000301
  4. NITROLINGUAL [Concomitant]
     Dosage: PRN.
     Route: 048
     Dates: start: 20000301
  5. UROSIN [Concomitant]
     Route: 048
     Dates: start: 20000407
  6. GEVILON [Concomitant]
     Route: 048
     Dates: start: 20000519

REACTIONS (2)
  - CHEILITIS [None]
  - LIP ULCERATION [None]
